FAERS Safety Report 18750999 (Version 1)
Quarter: 2021Q1

REPORT INFORMATION
  Report Type: Spontaneous
  Country: US (occurrence: US)
  Receive Date: 20210118
  Receipt Date: 20210118
  Transmission Date: 20210419
  Serious: Yes (Other)
  Sender: FDA-Public Use
  Company Number: US-SA-2021SA008909

PATIENT
  Age: 51 Year
  Sex: Male

DRUGS (1)
  1. ZANTAC [Suspect]
     Active Substance: RANITIDINE HYDROCHLORIDE
     Indication: DYSPEPSIA
     Dosage: 150 MG (FREQUNCY: OTHER)
     Dates: start: 201301, end: 201712

REACTIONS (1)
  - Renal cancer stage I [Recovering/Resolving]

NARRATIVE: CASE EVENT DATE: 20160101
